FAERS Safety Report 7761662-4 (Version None)
Quarter: 2011Q3

REPORT INFORMATION
  Report Type: 
  Country: None (occurrence: None)
  Receive Date: 20110920
  Receipt Date: 20110912
  Transmission Date: 20111222
  Serious: Yes (Other)
  Sender: FDA-Public Use
  Company Number: TW-BRISTOL-MYERS SQUIBB COMPANY-16054793

PATIENT
  Age: 78 Year
  Sex: Female

DRUGS (1)
  1. TRIAMCINOLONE ACETONIDE [Suspect]
     Indication: CHOROIDAL NEOVASCULARISATION
     Dosage: ROUTE:INTAVITREAL

REACTIONS (1)
  - RETINAL PIGMENT EPITHELIAL TEAR [None]
